FAERS Safety Report 14491837 (Version 1)
Quarter: 2018Q1

REPORT INFORMATION
  Report Type: Spontaneous
  Country: US (occurrence: US)
  Receive Date: 20180206
  Receipt Date: 20180206
  Transmission Date: 20180509
  Serious: Yes (Disabling)
  Sender: FDA-Public Use
  Company Number: US-009507513-1802USA000189

PATIENT
  Sex: Female

DRUGS (1)
  1. KEYTRUDA [Suspect]
     Active Substance: PEMBROLIZUMAB
     Indication: NON-HODGKIN^S LYMPHOMA
     Dosage: 200 MG, EVERY 3 WEEKS
     Route: 042

REACTIONS (2)
  - Product use in unapproved indication [Unknown]
  - Headache [Not Recovered/Not Resolved]
